FAERS Safety Report 6930221-5 (Version None)
Quarter: 2010Q3

REPORT INFORMATION
  Report Type: 
  Country: None (occurrence: None)
  Receive Date: 20100818
  Receipt Date: 20100811
  Transmission Date: 20110219
  Serious: Yes (Death)
  Sender: FDA-Public Use
  Company Number: NZ-ABBOTT-10P-118-0652701-00

PATIENT
  Sex: Male
  Weight: 114 kg

DRUGS (7)
  1. SIBUTRAMINE HYDROCHLORIDE MONOHYDRATE [Suspect]
     Indication: OBESITY
     Dates: start: 20021005
  2. SOMAC [Concomitant]
     Indication: PRODUCT USED FOR UNKNOWN INDICATION
  3. SOLPRIN [Concomitant]
     Indication: PRODUCT USED FOR UNKNOWN INDICATION
  4. MELLARIL [Concomitant]
     Indication: PRODUCT USED FOR UNKNOWN INDICATION
  5. LISINOPRIL [Concomitant]
     Indication: PRODUCT USED FOR UNKNOWN INDICATION
  6. BETALOC CR [Concomitant]
     Indication: PRODUCT USED FOR UNKNOWN INDICATION
  7. ADALAT [Concomitant]
     Indication: PRODUCT USED FOR UNKNOWN INDICATION

REACTIONS (3)
  - CEREBRAL HAEMORRHAGE [None]
  - HAEMORRHAGIC STROKE [None]
  - HYPERTENSION [None]
